FAERS Safety Report 4830963-1 (Version None)
Quarter: 2005Q4

REPORT INFORMATION
  Report Type: 
  Country: None (occurrence: None)
  Receive Date: 20051114
  Receipt Date: 20051027
  Transmission Date: 20060501
  Serious: Yes (Hospitalization)
  Sender: FDA-Public Use
  Company Number: 2005-02256

PATIENT
  Age: 1 Year
  Sex: Female
  Weight: 65 kg

DRUGS (1)
  1. VELCADE [Suspect]
     Indication: PLASMACYTOMA
     Dosage: 2.30 MG, 2/WEEK, INTRAVENOUS
     Route: 042
     Dates: start: 20050909, end: 20051013

REACTIONS (2)
  - DIARRHOEA [None]
  - ENTEROCOLITIS HAEMORRHAGIC [None]
